FAERS Safety Report 8243578-2 (Version None)
Quarter: 2012Q1

REPORT INFORMATION
  Report Type: 
  Country: None (occurrence: None)
  Receive Date: 20120315
  Receipt Date: 20100308
  Transmission Date: 20120608
  Serious: Yes (Other)
  Sender: FDA-Public Use
  Company Number: PHEH2010US02836

PATIENT
  Age: 55 Year
  Sex: Female

DRUGS (2)
  1. FANAPT [Suspect]
     Dosage: 2 MG, BID, ORAL : 1 MG, BID
     Route: 048
     Dates: start: 20100222
  2. COZAAR [Suspect]
     Indication: HYPERTENSION
     Dosage: ORAL
     Route: 048

REACTIONS (1)
  - ORTHOSTATIC HYPOTENSION [None]
